FAERS Safety Report 14853354 (Version 3)
Quarter: 2018Q2

REPORT INFORMATION
  Report Type: Report from Study
  Country: ES (occurrence: ES)
  Receive Date: 20180507
  Receipt Date: 20180515
  Transmission Date: 20180711
  Serious: Yes (Other)
  Sender: FDA-Public Use
  Company Number: ES-PFIZER INC-2018181837

PATIENT
  Age: 42 Year
  Sex: Female
  Weight: 68.7 kg

DRUGS (10)
  1. EUTIROX [Concomitant]
     Active Substance: LEVOTHYROXINE SODIUM
     Dosage: UNK
     Route: 048
  2. QUETIAPINE. [Interacting]
     Active Substance: QUETIAPINE
     Dosage: 25 MG, 1X/DAY (0-0-1)
     Route: 048
     Dates: start: 20160913
  3. QUETIAPINE. [Interacting]
     Active Substance: QUETIAPINE
     Indication: BIPOLAR DISORDER
     Dosage: 50 MG, 1X/DAY  (0-0-1)
     Route: 048
     Dates: start: 20160626, end: 20160627
  4. VENLAFAXINE HCL [Interacting]
     Active Substance: VENLAFAXINE HYDROCHLORIDE
     Indication: BIPOLAR DISORDER
  5. RISPERDAL FLAS [Interacting]
     Active Substance: RISPERIDONE
     Dosage: 3 MG, 1X/DAY (0-0-1)
     Route: 048
     Dates: start: 20160901
  6. VENLAFAXINE HCL [Suspect]
     Active Substance: VENLAFAXINE HYDROCHLORIDE
     Indication: PSYCHOTIC DISORDER
     Dosage: 150 MG, 1X/DAY
     Route: 048
     Dates: start: 20160627
  7. RISPERDAL FLAS [Interacting]
     Active Substance: RISPERIDONE
     Indication: BIPOLAR DISORDER
     Dosage: 6 MG, 1X/DAY (1/2-1/2-1)
     Route: 048
     Dates: start: 20160626, end: 20160627
  8. RISPERDAL FLAS [Interacting]
     Active Substance: RISPERIDONE
     Indication: PSYCHOTIC DISORDER
     Dosage: 4.5 MG, 1X/DAY (1/2-0-1)
     Route: 048
     Dates: start: 20160627, end: 20160901
  9. QUETIAPINE. [Interacting]
     Active Substance: QUETIAPINE
     Indication: PSYCHOTIC DISORDER
     Dosage: 100 MG, 1X/DAY (1-0-1)
     Route: 048
     Dates: start: 20160627, end: 20160910
  10. QUETIAPINE. [Interacting]
     Active Substance: QUETIAPINE
     Dosage: 50 MG, 1X/DAY (0-0-1)
     Route: 048
     Dates: start: 20160910, end: 20160913

REACTIONS (2)
  - Drug interaction [Not Recovered/Not Resolved]
  - Abnormal weight gain [Not Recovered/Not Resolved]

NARRATIVE: CASE EVENT DATE: 201606
